FAERS Safety Report 13847337 (Version 1)
Quarter: 2017Q3

REPORT INFORMATION
  Report Type: Spontaneous
  Country: US (occurrence: US)
  Receive Date: 20170808
  Receipt Date: 20170808
  Transmission Date: 20171127
  Serious: Yes (Hospitalization, Other)
  Sender: FDA-Public Use
  Company Number: US-PURDUE-USA-2017-0140151

PATIENT
  Sex: Female

DRUGS (6)
  1. PHENTERMINE. [Suspect]
     Active Substance: PHENTERMINE
     Indication: PRODUCT USED FOR UNKNOWN INDICATION
     Dosage: UNK
     Route: 065
     Dates: start: 2004
  2. OXYCONTIN [Suspect]
     Active Substance: OXYCODONE HYDROCHLORIDE
     Indication: PSORIATIC ARTHROPATHY
     Dosage: 20 MG, UP TO 60 MG THREE TIMES DAILY
     Route: 048
  3. OXYCONTIN [Suspect]
     Active Substance: OXYCODONE HYDROCHLORIDE
     Indication: OSTEOARTHRITIS
  4. FENTANYL. [Concomitant]
     Active Substance: FENTANYL
     Indication: PAIN
     Dosage: UNK
     Route: 065
  5. GABAPENTIN. [Suspect]
     Active Substance: GABAPENTIN
     Indication: PAIN
     Dosage: 650 MG, TID
     Route: 065
     Dates: start: 2002
  6. FENFLURAMINE [Suspect]
     Active Substance: FENFLURAMINE
     Indication: PRODUCT USED FOR UNKNOWN INDICATION
     Dosage: UNK
     Route: 065
     Dates: start: 2004

REACTIONS (16)
  - Swelling face [Unknown]
  - Inadequate analgesia [Unknown]
  - Off label use [Unknown]
  - Wound secretion [Unknown]
  - Pulmonary hypertension [Unknown]
  - Diabetes mellitus [Unknown]
  - Neck mass [Unknown]
  - Vomiting [Recovered/Resolved]
  - Spinal fracture [Unknown]
  - Infection [Unknown]
  - Sepsis [Unknown]
  - Somnolence [Unknown]
  - Nausea [Recovered/Resolved]
  - Ameloblastoma [Unknown]
  - Intervertebral disc protrusion [Unknown]
  - Reaction to excipient [Unknown]

NARRATIVE: CASE EVENT DATE: 2002
